FAERS Safety Report 12100610 (Version 1)
Quarter: 2016Q1

REPORT INFORMATION
  Report Type: Report from Study
  Country: CN (occurrence: CN)
  Receive Date: 20160222
  Receipt Date: 20160222
  Transmission Date: 20160526
  Serious: Yes (Death)
  Sender: FDA-Public Use
  Company Number: CN-MYLANLABS-2016M1006060

PATIENT

DRUGS (8)
  1. EPIRUBICIN [Suspect]
     Active Substance: EPIRUBICIN
     Indication: LYMPHOMA
     Dosage: 80 MG/M2, IV DRIP, DAY 4
     Route: 042
  2. METHOTREXATE [Suspect]
     Active Substance: METHOTREXATE
     Indication: LYMPHOMA
     Dosage: 1G/M2, IV DRIP MAINTAINED FOR 24 HOURS
     Route: 042
  3. FOLINIC ACID [Suspect]
     Active Substance: LEUCOVORIN
     Dosage: 15MG ORALLY, 12 HOURS AFTER THE COMPLETION OF METHOTREXATE DRIP
     Route: 042
  4. VINCRISTINE [Suspect]
     Active Substance: VINCRISTINE
     Indication: LYMPHOMA
     Dosage: 2MG DAY 4 AND 11; CYCLIC
     Route: 042
  5. CYTARABINE. [Suspect]
     Active Substance: CYTARABINE
     Indication: LYMPHOMA
     Dosage: 1.5G/M2,ONCE EVERY 12 HOURS, IV DRIP, DAY 2-3
     Route: 042
  6. DEXAMETHASONE. [Suspect]
     Active Substance: DEXAMETHASONE
     Indication: LYMPHOMA
     Dosage: 30-40MG ON DAY 1-4 AND DAY 11-14
     Route: 065
  7. FOLINIC ACID [Suspect]
     Active Substance: LEUCOVORIN
     Indication: LYMPHOMA
     Dosage: ONCE EVERY 6 HOURS, 50MG IV THE FIRST 4 TIMES AND THEREAFTER 15MG ORALLY, 12 HOURS
     Route: 042
  8. CYCLOPHOSPHAMIDE. [Suspect]
     Active Substance: CYCLOPHOSPHAMIDE
     Indication: LYMPHOMA
     Dosage: CYCLIC; THE IV DRIP WAS MAINTAINED FOR MORE THAN 2 HOURS, FROM DAY 1-3
     Route: 042

REACTIONS (2)
  - Gastrointestinal haemorrhage [Fatal]
  - Platelet count decreased [Fatal]
